FAERS Safety Report 13668399 (Version 1)
Quarter: 2017Q2

REPORT INFORMATION
  Report Type: Spontaneous
  Country: US (occurrence: US)
  Receive Date: 20170619
  Receipt Date: 20170619
  Transmission Date: 20170830
  Serious: Yes (Disabling)
  Sender: FDA-Public Use
  Company Number: None

PATIENT
  Age: 10 Year
  Sex: Male
  Weight: 30.6 kg

DRUGS (14)
  1. ADDERALL IR GENERIC [Concomitant]
  2. 5HTP [Concomitant]
  3. ZOLOFT [Concomitant]
     Active Substance: SERTRALINE HYDROCHLORIDE
  4. STRATTERA [Concomitant]
     Active Substance: ATOMOXETINE HYDROCHLORIDE
  5. FOLINIC ACID [Concomitant]
     Active Substance: LEUCOVORIN
  6. P-5-P [Concomitant]
  7. VITAMIN C [Concomitant]
     Active Substance: ASCORBIC ACID
  8. PROBIOTIC [Concomitant]
     Active Substance: PROBIOTICS NOS
  9. ATOMOXETINE CAPSULES USP 25MG [Suspect]
     Active Substance: ATOMOXETINE
     Indication: ATTENTION DEFICIT/HYPERACTIVITY DISORDER
     Dosage: ?          QUANTITY:1 CAPSULE(S);?
     Route: 048
     Dates: start: 20170613
  10. PRIMROSE OIL [Concomitant]
  11. INTUNIV [Concomitant]
     Active Substance: GUANFACINE HYDROCHLORIDE
  12. ADDERALL ER GENERIC [Concomitant]
  13. MELATONIN [Concomitant]
     Active Substance: MELATONIN
  14. VITAMIN D [Concomitant]
     Active Substance: CHOLECALCIFEROL

REACTIONS (6)
  - Depression [None]
  - Frustration tolerance decreased [None]
  - Agitation [None]
  - Abdominal pain upper [None]
  - Intermittent explosive disorder [None]
  - Product substitution issue [None]

NARRATIVE: CASE EVENT DATE: 20170618
